FAERS Safety Report 20631065 (Version 1)
Quarter: 2022Q1

REPORT INFORMATION
  Report Type: Spontaneous
  Country: PT (occurrence: GB)
  Receive Date: 20220324
  Receipt Date: 20220324
  Transmission Date: 20220423
  Serious: Yes (Other)
  Sender: FDA-Public Use
  Company Number: PT-AMGEN-GBRSP2022047985

PATIENT

DRUGS (4)
  1. ADALIMUMAB [Suspect]
     Active Substance: ADALIMUMAB
     Indication: Iridocyclitis
     Dosage: UNK
     Route: 065
  2. ADALIMUMAB [Suspect]
     Active Substance: ADALIMUMAB
     Indication: Uveitis
  3. ADALIMUMAB [Suspect]
     Active Substance: ADALIMUMAB
     Indication: Chorioretinitis
  4. ADALIMUMAB [Suspect]
     Active Substance: ADALIMUMAB
     Indication: Uveitis

REACTIONS (9)
  - Macular oedema [Unknown]
  - Glaucoma [Unknown]
  - Corneal decompensation [Unknown]
  - Vitreous haze [Unknown]
  - Cataract [Unknown]
  - COVID-19 [Unknown]
  - Treatment failure [Unknown]
  - Visual acuity reduced [Unknown]
  - Infection [Unknown]
